FAERS Safety Report 6591395-1 (Version None)
Quarter: 2010Q1

REPORT INFORMATION
  Report Type: 
  Country: None (occurrence: None)
  Receive Date: 20100219
  Receipt Date: 20100209
  Transmission Date: 20100710
  Serious: Yes (Death)
  Sender: FDA-Public Use
  Company Number: IT-WATSON-2010-01643

PATIENT
  Age: 43 Year
  Sex: Male

DRUGS (11)
  1. AFEDITAB CR [Suspect]
     Indication: HYPERTENSION
     Dosage: 30 MG, BID
     Route: 048
     Dates: end: 20071102
  2. DISULFIRAM [Suspect]
     Indication: ALCOHOL ABUSE
     Dosage: 200 MG, DAILY
     Route: 048
  3. AMITRIPTYLINE HCL [Suspect]
     Indication: ALCOHOL ABUSE
     Dosage: 25 MG, DAILY
     Route: 048
  4. RITONAVIR [Suspect]
     Indication: HIV INFECTION
     Dosage: 100 MG, BID
     Route: 048
  5. FOSAMPRENAVIR [Suspect]
     Indication: HIV INFECTION
     Dosage: 700 MG, BID
     Route: 048
  6. TENOFOVIR [Suspect]
     Indication: HIV INFECTION
  7. EMTRICITABINE [Suspect]
     Indication: HIV INFECTION
  8. DIDANOSINE [Suspect]
     Indication: HIV INFECTION
  9. STAVUDINE [Suspect]
     Indication: HIV INFECTION
     Dosage: UNK
     Dates: start: 19990101
  10. ZIDOVUDINE [Suspect]
     Indication: HIV INFECTION
     Dosage: UNK
     Dates: start: 19980101, end: 19990101
  11. LAMIVUDINE [Suspect]
     Indication: HIV INFECTION
     Dosage: UNK
     Dates: start: 19980101, end: 19990101

REACTIONS (3)
  - DRUG INTERACTION [None]
  - LACTIC ACIDOSIS [None]
  - MULTI-ORGAN FAILURE [None]
